FAERS Safety Report 15720153 (Version 2)
Quarter: 2018Q4

REPORT INFORMATION
  Report Type: Spontaneous
  Country: US (occurrence: US)
  Receive Date: 20181213
  Receipt Date: 20181219
  Transmission Date: 20190205
  Serious: Yes (Hospitalization)
  Sender: FDA-Public Use
  Company Number: MX-TEVA-2018-MX-986420

PATIENT
  Age: 28 Year
  Sex: Female

DRUGS (3)
  1. METAMFETAMINE [Suspect]
     Active Substance: METHAMPHETAMINE
     Indication: PRODUCT USED FOR UNKNOWN INDICATION
     Route: 065
  2. OXYCODONE [Suspect]
     Active Substance: OXYCODONE
     Indication: PRODUCT USED FOR UNKNOWN INDICATION
     Route: 065
  3. METHADONE [Suspect]
     Active Substance: METHADONE HYDROCHLORIDE
     Indication: PRODUCT USED FOR UNKNOWN INDICATION
     Route: 065

REACTIONS (7)
  - Normal newborn [Unknown]
  - Drug screen positive [Recovering/Resolving]
  - Urine amphetamine positive [Recovering/Resolving]
  - Brain oedema [Recovering/Resolving]
  - Loss of consciousness [Recovering/Resolving]
  - Basal ganglia infarction [Recovering/Resolving]
  - Maternal exposure during pregnancy [Unknown]
